FAERS Safety Report 5442572-4 (Version None)
Quarter: 2007Q3

REPORT INFORMATION
  Report Type: 
  Country: None (occurrence: None)
  Receive Date: 20070830
  Receipt Date: 20070815
  Transmission Date: 20080115
  Serious: Yes (Other)
  Sender: FDA-Public Use
  Company Number: ENTC2007-0238

PATIENT
  Sex: Male

DRUGS (1)
  1. STALEVO 100 [Suspect]
     Dosage: 300 MG, 3 IN 1 D, ORAL; 200 MG, 2 IN 1 D, ORAL; 300 MG, 3 IN 1 D,OAL
     Route: 048
     Dates: start: 20070630

REACTIONS (3)
  - HYPERTENSION [None]
  - INSOMNIA [None]
  - SENSORY DISTURBANCE [None]
